FAERS Safety Report 20575843 (Version 1)
Quarter: 2022Q1

REPORT INFORMATION
  Report Type: Other
  Country: US (occurrence: None)
  Receive Date: 20220310
  Receipt Date: 20220310
  Transmission Date: 20220423
  Serious: Yes (Death)
  Sender: FDA-Public Use
  Company Number: US-ROCHE-2811808

PATIENT
  Sex: Male

DRUGS (2)
  1. VALCYTE [Suspect]
     Active Substance: VALGANCICLOVIR HYDROCHLORIDE
     Indication: Lung transplant
     Dosage: 50 MG/ML, 9 ML = 450 MG VIA FEEDING TUBE TWICE DAILY; FROM RX PAD PRESCRIPTION SIGNED 05/19/2021
     Route: 048
  2. CELLCEPT [Suspect]
     Active Substance: MYCOPHENOLATE MOFETIL
     Indication: Lung transplant
     Dosage: 9 ML VIA FEEDING TUBE TWICE DAILY
     Route: 048

REACTIONS (4)
  - Off label use [Unknown]
  - Speech disorder [Unknown]
  - Product prescribing error [Unknown]
  - Death [Fatal]
